FAERS Safety Report 25325091 (Version 1)
Quarter: 2025Q2

REPORT INFORMATION
  Report Type: Spontaneous
  Country: US (occurrence: None)
  Receive Date: 20250516
  Receipt Date: 20250516
  Transmission Date: 20250717
  Serious: Yes (Disabling, Other)
  Sender: FDA-CTU
  Company Number: None

PATIENT
  Age: 68 Year
  Sex: Female
  Weight: 74.25 kg

DRUGS (6)
  1. WEGOVY [Suspect]
     Active Substance: SEMAGLUTIDE
     Indication: Weight decreased
     Dates: start: 20240531, end: 20250223
  2. levothyroxine, [Concomitant]
  3. RAMIPRIL [Concomitant]
     Active Substance: RAMIPRIL
  4. VITAMINS [Concomitant]
     Active Substance: VITAMINS
  5. D3 supplement [Concomitant]
  6. ASPIRIN [Concomitant]
     Active Substance: ASPIRIN

REACTIONS (6)
  - Sensitive skin [None]
  - Tremor [None]
  - Malaise [None]
  - Neuralgia [None]
  - Dizziness [None]
  - Impaired quality of life [None]

NARRATIVE: CASE EVENT DATE: 20240603
